FAERS Safety Report 6291544-9 (Version None)
Quarter: 2009Q3

REPORT INFORMATION
  Report Type: 
  Country: None (occurrence: None)
  Receive Date: 20090730
  Receipt Date: 20090720
  Transmission Date: 20100115
  Serious: Yes (Hospitalization)
  Sender: FDA-Public Use
  Company Number: FR-ELI_LILLY_AND_COMPANY-FR200907004096

PATIENT
  Age: 45 Year
  Sex: Female

DRUGS (2)
  1. CYMBALTA [Suspect]
     Indication: DEPRESSION
     Dosage: 60 MG, DAILY (1/D)
     Route: 048
     Dates: start: 20090710, end: 20090718
  2. LUTENYL [Concomitant]
     Dosage: UNK, UNKNOWN
     Route: 048

REACTIONS (3)
  - ABDOMINAL PAIN [None]
  - LARGE INTESTINAL ULCER [None]
  - RECTAL HAEMORRHAGE [None]
